FAERS Safety Report 18146116 (Version 1)
Quarter: 2020Q3

REPORT INFORMATION
  Report Type: Spontaneous
  Country: CN (occurrence: CN)
  Receive Date: 20200813
  Receipt Date: 20200813
  Transmission Date: 20201103
  Serious: Yes (Other)
  Sender: FDA-Public Use
  Company Number: CN-PFIZER INC-2020307727

PATIENT

DRUGS (1)
  1. ZOLOFT [Suspect]
     Active Substance: SERTRALINE HYDROCHLORIDE
     Dosage: 8 DF, SINGLE
     Route: 048
     Dates: start: 20200811, end: 20200811

REACTIONS (2)
  - Suicide attempt [Unknown]
  - Overdose [Unknown]

NARRATIVE: CASE EVENT DATE: 20200811
